FAERS Safety Report 14890356 (Version 2)
Quarter: 2018Q2

REPORT INFORMATION
  Report Type: Spontaneous
  Country: US (occurrence: US)
  Receive Date: 20180514
  Receipt Date: 20180518
  Transmission Date: 20180711
  Serious: No
  Sender: FDA-Public Use
  Company Number: US-PFIZER INC-2018195162

PATIENT
  Age: 25 Year
  Sex: Female

DRUGS (8)
  1. METHOTREXATE SODIUM. [Suspect]
     Active Substance: METHOTREXATE SODIUM
     Dosage: UNK
     Dates: start: 201004, end: 201012
  2. SIMPONI [Suspect]
     Active Substance: GOLIMUMAB
     Dosage: UNK
     Dates: start: 201003, end: 201012
  3. OTEZLA [Suspect]
     Active Substance: APREMILAST
     Dosage: UNK
     Dates: start: 201801, end: 201805
  4. STELARA [Suspect]
     Active Substance: USTEKINUMAB
     Dosage: UNK
     Dates: start: 201108, end: 201703
  5. REMICADE [Suspect]
     Active Substance: INFLIXIMAB
     Dosage: UNK
     Dates: start: 200908, end: 201002
  6. HUMIRA [Suspect]
     Active Substance: ADALIMUMAB
     Dosage: UNK
     Dates: start: 200805, end: 200903
  7. ENBREL [Suspect]
     Active Substance: ETANERCEPT
     Dosage: UNK
     Dates: start: 201101, end: 201104
  8. COSENTYX [Suspect]
     Active Substance: SECUKINUMAB
     Dosage: UNK
     Dates: start: 201703, end: 201801

REACTIONS (1)
  - Drug effect incomplete [Unknown]
